FAERS Safety Report 9649347 (Version 1)
Quarter: 2013Q4

REPORT INFORMATION
  Report Type: Spontaneous
  Country: US (occurrence: None)
  Receive Date: 20131018
  Receipt Date: 20131018
  Transmission Date: 20140711
  Serious: No
  Sender: FDA-Public Use
  Company Number: AEGR000112

PATIENT
  Age: 37 Year
  Sex: Male
  Weight: 158.3 kg

DRUGS (17)
  1. JUXTAPID (LOMITAPIDE) CAPSULE, 5 MG [Suspect]
     Indication: TYPE IIA HYPERLIPIDAEMIA
     Route: 048
     Dates: start: 201308
  2. CILOSTAZOL(CILOSTAZOL) [Concomitant]
  3. EFFIENT(PRASUGREL HYDROCHLORIDE) [Concomitant]
  4. CRESTOR(ROSUVASTATIN CALCIUM) [Concomitant]
  5. HYDROCHLOROTHIAZIDE(HYDROCHLOROTHIAZIDE) [Concomitant]
  6. IMDUR(ISOSORBIDE MONONITRATE) [Concomitant]
  7. LISINOPRIL(LISINOPRIL) [Concomitant]
  8. PANTOPRAZOLE(PANTOPRAZOLE) [Concomitant]
  9. LASIX(FUROSEMIDE SODIUM) [Concomitant]
  10. METOPROLOL(METROPROLOL SUCCINATE) [Concomitant]
  11. NIACIN(NIACIN) [Concomitant]
  12. RANEXA(RANOLAZINE) [Concomitant]
  13. TRAZODONE(TRAZODONE) [Concomitant]
  14. ZANTAC(RANITIDINE HYDROCHLORIDE) [Concomitant]
  15. POTASSIUM(POTASSIUM CHLORIDE) [Concomitant]
  16. WELCHOL(COLESVELAM HYDROCHLORIDE) [Concomitant]
  17. VITAMIN D (ERGOCALCIFEROL) [Concomitant]

REACTIONS (1)
  - Diarrhoea [None]
